FAERS Safety Report 5848438-X (Version None)
Quarter: 2008Q3

REPORT INFORMATION
  Report Type: 
  Country: None (occurrence: None)
  Receive Date: 20080818
  Receipt Date: 20080804
  Transmission Date: 20090109
  Serious: Yes (Hospitalization, Other)
  Sender: FDA-Public Use
  Company Number: US-ROCHE-579828

PATIENT
  Sex: Female

DRUGS (23)
  1. TAMIFLU [Suspect]
     Indication: DRUG USE FOR UNKNOWN INDICATION
     Route: 065
     Dates: start: 20080308
  2. AVELOX [Suspect]
     Route: 048
     Dates: start: 20080303, end: 20080308
  3. AVELOX [Suspect]
     Route: 048
     Dates: start: 20080310, end: 20080312
  4. AVELOX [Suspect]
     Route: 048
  5. CIPROFLOXACIN HCL [Suspect]
     Indication: DRUG USE FOR UNKNOWN INDICATION
     Route: 048
     Dates: start: 20080313
  6. KEFLEX [Concomitant]
     Indication: UTERINE OPERATION
     Dates: start: 20080201
  7. TOPAMAX [Concomitant]
  8. WELLBUTRIN [Concomitant]
  9. KLONOPIN [Concomitant]
  10. NASONEX [Concomitant]
  11. MAXALT [Concomitant]
  12. 1 CONCOMITANT DRUG [Concomitant]
     Dosage: REPORTED AS FLUIDS (NOS).
     Route: 042
     Dates: start: 20080308
  13. TORADOL [Concomitant]
     Dates: start: 20080308
  14. MORPHINE [Concomitant]
     Indication: PAIN
     Dates: start: 20080308
  15. HYOSCYAMINE [Concomitant]
     Dates: start: 20080308
  16. PHENERGAN HCL [Concomitant]
     Dates: start: 20080308
  17. POTASSIUM SUPPLEMENT [Concomitant]
     Dates: start: 20080314, end: 20080328
  18. POTASSIUM SUPPLEMENT [Concomitant]
     Dates: start: 20080329
  19. FLAGYL [Concomitant]
     Route: 042
     Dates: start: 20080314
  20. VANCOMYCIN [Concomitant]
     Route: 048
     Dates: start: 20080314
  21. QUESTRAN [Concomitant]
     Dates: start: 20080314
  22. FLORA-Q [Concomitant]
     Dates: start: 20080318
  23. NEXIUM [Concomitant]
     Dates: start: 20080318

REACTIONS (13)
  - ABDOMINAL DISTENSION [None]
  - ABDOMINAL TENDERNESS [None]
  - BLOOD POTASSIUM DECREASED [None]
  - CLOSTRIDIAL INFECTION [None]
  - DIARRHOEA [None]
  - FEELING ABNORMAL [None]
  - MITRAL VALVE PROLAPSE [None]
  - NAUSEA [None]
  - PAIN [None]
  - PALPITATIONS [None]
  - PYREXIA [None]
  - TREMOR [None]
  - VOMITING [None]
